FAERS Safety Report 9222264 (Version 2)
Quarter: 2013Q2

REPORT INFORMATION
  Report Type: Spontaneous
  Country: US (occurrence: None)
  Receive Date: 20130408
  Receipt Date: 20130418
  Transmission Date: 20140414
  Serious: Yes (Death, Hospitalization)
  Sender: FDA-Public Use
  Company Number: UTC-031144

PATIENT
  Age: 52 Year
  Sex: Male
  Weight: 123.6 kg

DRUGS (2)
  1. REMODULIN [Suspect]
     Indication: PORTOPULMONARY HYPERTENSION
     Dosage: 28.8 UG/KG (0.02 UG/KG, 1 IN 1 MIN), SUBCUTANEOUS
     Route: 058
     Dates: start: 20121127
  2. TRACLEER (BOSENTAN) (UNKNOWN) [Concomitant]

REACTIONS (4)
  - Hepatic failure [None]
  - Hypotension [None]
  - Shock [None]
  - Renal failure acute [None]
